FAERS Safety Report 5672311-3 (Version None)
Quarter: 2008Q1

REPORT INFORMATION
  Report Type: 
  Country: None (occurrence: None)
  Receive Date: 20080319
  Receipt Date: 20080311
  Transmission Date: 20080703
  Serious: Yes (Other)
  Sender: FDA-Public Use
  Company Number: US-ASTRAZENECA-2008UW02844

PATIENT
  Age: 78 Year
  Sex: Female
  Weight: 96.4 kg

DRUGS (10)
  1. ARIMIDEX [Suspect]
     Indication: BREAST CANCER
     Route: 048
     Dates: start: 20060101, end: 20080101
  2. LEVOTHYROXINE SODIUM [Concomitant]
  3. K-DUR 10 [Concomitant]
  4. NORVASC [Concomitant]
  5. SULINDAC [Concomitant]
  6. ENDAPIMIDE [Concomitant]
  7. FLUTICASONE [Concomitant]
  8. ZOLOFT [Concomitant]
  9. ATENOLOL [Concomitant]
  10. CLONIDINE [Concomitant]

REACTIONS (2)
  - ARTHRITIS [None]
  - GAIT DISTURBANCE [None]
